FAERS Safety Report 12906818 (Version 1)
Quarter: 2016Q4

REPORT INFORMATION
  Report Type: Spontaneous
  Country: GB (occurrence: GB)
  Receive Date: 20161103
  Receipt Date: 20161103
  Transmission Date: 20170207
  Serious: Yes (Disabling)
  Sender: FDA-Public Use
  Company Number: GB-ALLERGAN-1674520US

PATIENT
  Age: 26 Year
  Sex: Female
  Weight: 63.5 kg

DRUGS (2)
  1. CETIRIZINE HYDROCHLORIDE. [Concomitant]
     Active Substance: CETIRIZINE HYDROCHLORIDE
     Indication: PRODUCT USED FOR UNKNOWN INDICATION
     Route: 065
  2. ESCITALOPRAM OXALATE - BP [Suspect]
     Active Substance: ESCITALOPRAM OXALATE
     Indication: DEPRESSION
     Route: 048
     Dates: start: 20050201, end: 20120802

REACTIONS (5)
  - Disturbance in sexual arousal [Not Recovered/Not Resolved]
  - Libido decreased [Not Recovered/Not Resolved]
  - Vulvovaginal dryness [Not Recovered/Not Resolved]
  - Female sexual dysfunction [Not Recovered/Not Resolved]
  - Female orgasmic disorder [Not Recovered/Not Resolved]

NARRATIVE: CASE EVENT DATE: 20060402
